FAERS Safety Report 23566017 (Version 1)
Quarter: 2024Q1

REPORT INFORMATION
  Report Type: Spontaneous
  Country: US (occurrence: US)
  Receive Date: 20240226
  Receipt Date: 20240226
  Transmission Date: 20240410
  Serious: Yes (Hospitalization, Other)
  Sender: FDA-Public Use
  Company Number: US-BAYER-2024A025519

PATIENT
  Age: 71 Year
  Sex: Female
  Weight: 88.4 kg

DRUGS (20)
  1. CLARITIN-D NOS [Suspect]
     Active Substance: LORATADINE\PSEUDOEPHEDRINE SULFATE
  2. TYVASO DPI [Suspect]
     Active Substance: TREPROSTINIL
     Indication: Metastases to lung
     Dosage: 48 ?G, QID
     Route: 055
     Dates: start: 2023
  3. TYVASO DPI [Suspect]
     Active Substance: TREPROSTINIL
     Indication: Metastases to lung
     Dosage: UNK
     Route: 055
  4. TESSALON [Suspect]
     Active Substance: BENZONATATE
  5. MUCINEX [Suspect]
     Active Substance: GUAIFENESIN
  6. VITAMINS [Concomitant]
     Active Substance: VITAMINS
  7. FLONASE ALLERGY RELIEF [Suspect]
     Active Substance: FLUTICASONE PROPIONATE
  8. SYNTHROID [Concomitant]
     Active Substance: LEVOTHYROXINE SODIUM
  9. TYLENOL [Concomitant]
     Active Substance: ACETAMINOPHEN
  10. ALBUTEROL SULFATE [Concomitant]
     Active Substance: ALBUTEROL SULFATE
  11. VITAMIN D3 [Concomitant]
     Active Substance: CHOLECALCIFEROL
  12. AMLODIPINE BESYLATE [Concomitant]
     Active Substance: AMLODIPINE BESYLATE
  13. PLANTAGO MAJOR LEAF [Concomitant]
     Active Substance: PLANTAGO MAJOR LEAF
  14. ROSUVASTATIN CALCIUM [Concomitant]
     Active Substance: ROSUVASTATIN CALCIUM
  15. FUROSEMIDE [Concomitant]
     Active Substance: FUROSEMIDE
  16. PREDNISONE [Concomitant]
     Active Substance: PREDNISONE
  17. BREO ELLIPTA [Concomitant]
     Active Substance: FLUTICASONE FUROATE\VILANTEROL TRIFENATATE
  18. MONTELUKAST SODIUM [Concomitant]
     Active Substance: MONTELUKAST SODIUM
  19. AZITHROMYCIN [Concomitant]
     Active Substance: AZITHROMYCIN
  20. DIPHENHYDRAMINE HYDROCHLORIDE [Concomitant]
     Active Substance: DIPHENHYDRAMINE HYDROCHLORIDE

REACTIONS (2)
  - Dehydration [None]
  - Heart rate increased [None]

NARRATIVE: CASE EVENT DATE: 20231109
